FAERS Safety Report 9910864 (Version 2)
Quarter: 2014Q1

REPORT INFORMATION
  Report Type: Spontaneous
  Country: US (occurrence: US)
  Receive Date: 20140219
  Receipt Date: 20140317
  Transmission Date: 20141002
  Serious: No
  Sender: FDA-Public Use
  Company Number: US-BAXTER-2014BAX008106

PATIENT
  Sex: Male

DRUGS (1)
  1. CLINIMIX E? -SULFITE-FREE (AMINO ACID WITH ELECTROLYTES IN DEXTROSE WI [Suspect]
     Indication: PRODUCT USED FOR UNKNOWN INDICATION
     Route: 042
     Dates: start: 201307, end: 201307

REACTIONS (4)
  - Anxiety [Recovered/Resolved]
  - Agitation [Recovered/Resolved]
  - Restlessness [Recovered/Resolved]
  - Feeling of body temperature change [Recovered/Resolved]
